FAERS Safety Report 14034700 (Version 1)
Quarter: 2017Q4

REPORT INFORMATION
  Report Type: Report from Study
  Country: US (occurrence: US)
  Receive Date: 20171003
  Receipt Date: 20171003
  Transmission Date: 20180321
  Serious: Yes (Other)
  Sender: FDA-Public Use
  Company Number: US-UCBSA-2017039030

PATIENT
  Age: 55 Year
  Sex: Male

DRUGS (1)
  1. LACOSAMIDE. [Suspect]
     Active Substance: LACOSAMIDE
     Indication: SEIZURE
     Dosage: 200 MG, 2X/DAY (BID)
     Dates: start: 201701

REACTIONS (3)
  - Clostridium difficile infection [Not Recovered/Not Resolved]
  - Cyst [Unknown]
  - Syncope [Unknown]

NARRATIVE: CASE EVENT DATE: 201701
